FAERS Safety Report 9394358 (Version 1)
Quarter: 2013Q3

REPORT INFORMATION
  Report Type: Spontaneous
  Country: TW (occurrence: TW)
  Receive Date: 20130711
  Receipt Date: 20130711
  Transmission Date: 20140515
  Serious: Yes (Hospitalization)
  Sender: FDA-Public Use
  Company Number: TW-AMGEN-TWNSP2013048086

PATIENT
  Age: 61 Year
  Sex: Female

DRUGS (10)
  1. ENBREL [Suspect]
     Indication: RHEUMATOID ARTHRITIS
     Dosage: 25 MG, SIX DOSES PER MONTH
     Route: 058
     Dates: start: 200401, end: 20130517
  2. MTX                                /00113802/ [Concomitant]
     Indication: RHEUMATOID ARTHRITIS
     Dosage: 10 MG, QW
  3. AMLODIPINE [Concomitant]
     Indication: HYPERTENSION
     Dosage: 5 MG, QD
     Dates: start: 20071016
  4. LABETALOL [Concomitant]
     Indication: HYPERTENSION
     Dosage: 200 MG, BID
     Dates: start: 20071211
  5. FLUVASTATIN [Concomitant]
     Indication: HYPERLIPIDAEMIA
     Dosage: 80 MG, QD
     Dates: start: 20120323
  6. CELECOXIB [Concomitant]
     Indication: RHEUMATOID ARTHRITIS
     Dosage: 200 MG, QD
     Dates: start: 20120615
  7. FOLIC ACID [Concomitant]
     Indication: PROPHYLAXIS
     Dosage: 2.5 MG, QD
  8. PREDNISOLONE [Concomitant]
     Indication: RHEUMATOID ARTHRITIS
     Dosage: 5 MG, QD
  9. METFORMIN [Concomitant]
     Indication: DIABETES MELLITUS
     Dosage: 500 MG, BID
     Dates: start: 20080304
  10. GLIMEPIRIDE [Concomitant]
     Indication: DIABETES MELLITUS
     Dosage: 4 MG, QD
     Dates: start: 20070109

REACTIONS (1)
  - Liposarcoma [Recovering/Resolving]
